FAERS Safety Report 7612742-5 (Version None)
Quarter: 2011Q2

REPORT INFORMATION
  Report Type: 
  Country: None (occurrence: None)
  Receive Date: 20110620
  Receipt Date: 20110620
  Transmission Date: 20111010
  Serious: No
  Sender: FDA-Public Use
  Company Number: None

PATIENT
  Age: 68 Year
  Sex: Female

DRUGS (1)
  1. SKIN TISSUE HUMAN [Suspect]

REACTIONS (3)
  - DEVICE LEAKAGE [None]
  - DEVICE FAILURE [None]
  - DEVICE BREAKAGE [None]
